FAERS Safety Report 4692568-5 (Version None)
Quarter: 2005Q2

REPORT INFORMATION
  Report Type: 
  Country: None (occurrence: None)
  Receive Date: 20050617
  Receipt Date: 20041115
  Transmission Date: 20051028
  Serious: Yes (Hospitalization)
  Sender: FDA-Public Use
  Company Number: US-ROCHE-386416

PATIENT
  Age: 54 Year
  Sex: Female
  Weight: 101 kg

DRUGS (17)
  1. PEG-INTERFERON ALFA 2A (RO 25-8310) [Suspect]
     Route: 058
     Dates: start: 20040720, end: 20041108
  2. PEG-INTERFERON ALFA 2A (RO 25-8310) [Suspect]
     Route: 058
     Dates: start: 20041214, end: 20050424
  3. RIBAVIRIN [Suspect]
     Route: 048
     Dates: start: 20040720, end: 20041108
  4. TOPRAL [Concomitant]
     Indication: HYPERTENSION
     Dosage: DOSE INCREASED FROM 100 MG TO 200 MG ON 24 APRIL 2005.
     Dates: start: 20020615
  5. INSULIN [Concomitant]
     Dosage: DOSE CHANGED TO 2.5 MG TWICE DAILY ON 24 APRIL 2005 (PREVIOUSLY 15 UNITS).
     Dates: start: 20010515
  6. TEVETEN HCT [Concomitant]
     Dates: start: 20010415, end: 20050424
  7. DARVOCET [Concomitant]
     Dates: start: 20021115, end: 20050424
  8. ZOLOFT [Concomitant]
     Dosage: AS OF 03 DEC 2004 INCREASED TO 50 MG PER DAY.
     Dates: start: 20041019
  9. TOPROL-XL [Concomitant]
     Dosage: INCREASED DOSAGE AFTER ONSET OF GRAND MAL SEIZURE.
     Dates: start: 20011212
  10. PROPOXYPHENE NAPSYLATE [Concomitant]
     Dosage: TOTAL DAILY DOSE REPORTED AS 100/65MG.
     Dates: start: 20000615, end: 20050424
  11. PROTONIX [Concomitant]
     Dates: start: 20040810, end: 20050424
  12. LEXAPRO [Concomitant]
     Dates: start: 20040810, end: 20050424
  13. AUGMENTIN '125' [Concomitant]
     Dates: start: 20041203, end: 20041210
  14. FOLIC ACID [Concomitant]
     Dates: start: 20041203
  15. MAGNESIUM OXIDE [Concomitant]
     Dates: start: 20041203
  16. NEUTRA-PHOS [Concomitant]
     Dosage: TWO PACKS DAILY.
     Dates: start: 20041203
  17. PREVACID [Concomitant]
     Dates: start: 20041203

REACTIONS (10)
  - ACTIVATED PARTIAL THROMBOPLASTIN TIME PROLONGED [None]
  - AORTIC DISORDER [None]
  - ASTHENIA [None]
  - DIZZINESS [None]
  - GINGIVAL BLEEDING [None]
  - GOITRE [None]
  - GRAND MAL CONVULSION [None]
  - LOSS OF CONSCIOUSNESS [None]
  - NAUSEA [None]
  - VOMITING [None]
